FAERS Safety Report 9055119 (Version 2)
Quarter: 2013Q3

REPORT INFORMATION
  Report Type: Report from Study
  Country: HU (occurrence: HU)
  Receive Date: 20130206
  Receipt Date: 20130920
  Transmission Date: 20140515
  Serious: Yes (Hospitalization)
  Sender: FDA-Public Use
  Company Number: PHHO2011HU13705

PATIENT
  Age: 66 Year
  Sex: Male
  Weight: 71.3 kg

DRUGS (8)
  1. ALISKIREN [Suspect]
     Indication: CARDIOVASCULAR DISORDER
     Route: 048
  2. AMLODIPINE [Suspect]
     Dosage: 5 MG, UNK
     Route: 048
  3. ASA [Concomitant]
  4. ATORVASTATIN [Concomitant]
  5. LISINOPRIL [Concomitant]
  6. NEBIVOLOL [Concomitant]
  7. PANTOPRAZOLE [Concomitant]
  8. TRIMETAZIDINE [Concomitant]

REACTIONS (1)
  - Colon cancer metastatic [Recovered/Resolved with Sequelae]
